FAERS Safety Report 11936549 (Version 2)
Quarter: 2016Q1

REPORT INFORMATION
  Report Type: Spontaneous
  Country: JP (occurrence: JP)
  Receive Date: 20160121
  Receipt Date: 20160129
  Transmission Date: 20160526
  Serious: Yes (Life-Threatening, Hospitalization)
  Sender: FDA-Public Use
  Company Number: JP-GE HEALTHCARE MEDICAL DIAGNOSTICS-OMPQ-PR-1601S-0060

PATIENT
  Age: 84 Year
  Sex: Male
  Weight: 64 kg

DRUGS (12)
  1. JANUVIA [Concomitant]
     Active Substance: SITAGLIPTIN PHOSPHATE
     Dates: start: 20120222
  2. DIMETICONE [Concomitant]
     Active Substance: DIMETHICONE
  3. BIOFERMIN [Concomitant]
     Active Substance: BACILLUS SUBTILIS\LACTOBACILLUS ACIDOPHILUS\STREPTOCOCCUS FAECAIS
  4. CEROCRAL [Concomitant]
     Active Substance: IFENPRODIL
  5. OMNIPAQUE [Suspect]
     Active Substance: IOHEXOL
     Indication: HEPATIC CANCER
     Dosage: DOSE NOT REPORTED
     Route: 042
     Dates: start: 20151216, end: 20151216
  6. NP [Concomitant]
  7. OMNIPAQUE [Suspect]
     Active Substance: IOHEXOL
     Indication: DIAGNOSTIC PROCEDURE
  8. PANTETHINE [Concomitant]
     Active Substance: PANTETHINE
  9. KETOPROFEN. [Concomitant]
     Active Substance: KETOPROFEN
  10. BAYASPIRIN [Concomitant]
     Active Substance: ASPIRIN
  11. TEVA [Concomitant]
  12. ZE [Concomitant]

REACTIONS (2)
  - Tracheal stenosis [Recovered/Resolved]
  - Anaphylactic shock [Recovered/Resolved]

NARRATIVE: CASE EVENT DATE: 20151216
